FAERS Safety Report 8534442-X (Version None)
Quarter: 2012Q2

REPORT INFORMATION
  Report Type: 
  Country: None (occurrence: None)
  Receive Date: 20120412
  Receipt Date: 20090610
  Transmission Date: 20120825
  Serious: Yes (Other)
  Sender: FDA-Public Use
  Company Number: PHEH2009US03731

PATIENT
  Age: 47 Year
  Sex: Male

DRUGS (8)
  1. CLOZARIL [Suspect]
     Indication: PSYCHOTIC DISORDER
     Dosage: 200 MG, TID, ORAL
     Dates: start: 19910101
  2. CLOZARIL [Suspect]
     Indication: SCHIZOPHRENIA
     Dosage: 200 MG, TID, ORAL
     Dates: start: 19910101
  3. LEVOTHYROXINE SODIUM [Concomitant]
  4. METOPROLOL - SLOW RELEASE (METOPROLOL TARTRATE) [Concomitant]
  5. LIPITOR [Concomitant]
  6. TRIHEXYPHENIDYL HCL [Concomitant]
  7. COGENTIN [Concomitant]
  8. DEPAKOTE [Concomitant]

REACTIONS (8)
  - BLOOD TEST ABNORMAL [None]
  - DELUSION [None]
  - SPEECH DISORDER [None]
  - PSYCHIATRIC DECOMPENSATION [None]
  - PSYCHOTIC DISORDER [None]
  - DISTURBANCE IN ATTENTION [None]
  - PARANOIA [None]
  - WEIGHT DECREASED [None]
